FAERS Safety Report 8924411 (Version 1)
Quarter: 2012Q4

REPORT INFORMATION
  Report Type: 
  Country: GB (occurrence: GB)
  Receive Date: 20121126
  Receipt Date: 20121126
  Transmission Date: 20130627
  Serious: Yes (Hospitalization)
  Sender: FDA-Public Use
  Company Number: PHFR2012GB006040

PATIENT
  Age: 66 Year
  Sex: Male
  Weight: 69 kg

DRUGS (7)
  1. ESTRADIOL [Suspect]
     Dates: start: 20120816
  2. SUDOCREM [Concomitant]
     Dates: start: 20120716, end: 20120805
  3. NITROFURANTOIN [Concomitant]
     Dates: start: 20120813, end: 20120816
  4. CLOTRIMAZOLE [Concomitant]
     Dates: end: 20120926
  5. METRONIDAZOLE [Concomitant]
     Dates: end: 20120910
  6. OMEPRAZOLE [Concomitant]
     Dates: end: 20121018
  7. ESTRIOL [Concomitant]
     Dates: end: 20121018

REACTIONS (2)
  - Local reaction [Recovered/Resolved]
  - Pain [Recovered/Resolved]
